FAERS Safety Report 8520671-8 (Version None)
Quarter: 2012Q3

REPORT INFORMATION
  Report Type: 
  Country: None (occurrence: None)
  Receive Date: 20120719
  Receipt Date: 20120718
  Transmission Date: 20120928
  Serious: Yes (Death)
  Sender: FDA-Public Use
  Company Number: BR-ABBOTT-12P-020-0945161-00

PATIENT
  Sex: Male
  Weight: 90 kg

DRUGS (2)
  1. HUMIRA [Suspect]
     Indication: PSORIASIS
     Dosage: INDUCTION DOSE (WEEK 0)
     Dates: start: 20100506, end: 20100506
  2. HUMIRA [Suspect]
     Dates: end: 20120420

REACTIONS (2)
  - MULTI-ORGAN DISORDER [None]
  - MULTIPLE INJURIES [None]
